FAERS Safety Report 9747598 (Version 13)
Quarter: 2014Q4

REPORT INFORMATION
  Report Type: Spontaneous
  Country: US (occurrence: US)
  Receive Date: 20131212
  Receipt Date: 20141002
  Transmission Date: 20150529
  Serious: Yes (Hospitalization, Other)
  Sender: FDA-Public Use
  Company Number: US-JNJFOC-20131200717

PATIENT
  Age: 31 Year
  Sex: Female
  Weight: 66.23 kg

DRUGS (7)
  1. DOXYLAMINE SUCCINATE [Concomitant]
     Active Substance: DOXYLAMINE SUCCINATE
     Indication: PRODUCT USED FOR UNKNOWN INDICATION
  2. PRENATAL VITAMINS [Concomitant]
     Active Substance: VITAMINS
     Indication: PRODUCT USED FOR UNKNOWN INDICATION
     Route: 065
  3. TYLENOL EXTRA STRENGTH [Suspect]
     Active Substance: ACETAMINOPHEN
     Indication: HEADACHE
     Route: 065
     Dates: start: 2005, end: 2013
  4. TYLENOL EXTRA STRENGTH [Suspect]
     Active Substance: ACETAMINOPHEN
     Indication: HEADACHE
     Route: 048
     Dates: start: 20130411, end: 20130415
  5. TYLENOL PM [Suspect]
     Active Substance: ACETAMINOPHEN\DIPHENHYDRAMINE
     Indication: SLEEP DISORDER THERAPY
     Route: 065
     Dates: start: 2005, end: 2013
  6. TYLENOL EXTRA STRENGTH [Suspect]
     Active Substance: ACETAMINOPHEN
     Indication: PAIN
     Route: 065
     Dates: start: 2005, end: 2013
  7. TYLENOL EXTRA STRENGTH [Suspect]
     Active Substance: ACETAMINOPHEN
     Indication: PAIN
     Route: 048
     Dates: start: 20130411, end: 20130415

REACTIONS (11)
  - Acute hepatic failure [Recovering/Resolving]
  - Hypovolaemia [Unknown]
  - Foetal death [Recovered/Resolved]
  - Leukocytosis [Unknown]
  - Renal failure [Recovering/Resolving]
  - Bandaemia [Unknown]
  - Depressed mood [Unknown]
  - Accidental overdose [Recovered/Resolved]
  - Exposure during pregnancy [Recovered/Resolved]
  - Feeling guilty [Unknown]
  - Drug ineffective [Unknown]

NARRATIVE: CASE EVENT DATE: 201304
